FAERS Safety Report 25898678 (Version 1)
Quarter: 2025Q4

REPORT INFORMATION
  Report Type: Spontaneous
  Country: JP (occurrence: JP)
  Receive Date: 20251009
  Receipt Date: 20251009
  Transmission Date: 20260118
  Serious: Yes (Other)
  Sender: AMGEN
  Company Number: JP-AMGEN-JPNSP2025197848

PATIENT
  Age: 61 Year
  Sex: Female

DRUGS (1)
  1. REPATHA [Suspect]
     Active Substance: EVOLOCUMAB
     Indication: Myocardial infarction
     Dosage: 140 MILLIGRAM, Q2WK, CONTINUED AT Q2W UNTIL AUG
     Route: 058
     Dates: start: 20250606

REACTIONS (2)
  - Intestinal obstruction [Recovered/Resolved]
  - Volvulus of small bowel [Recovered/Resolved]

NARRATIVE: CASE EVENT DATE: 20250607
